FAERS Safety Report 7353625-8 (Version None)
Quarter: 2011Q1

REPORT INFORMATION
  Report Type: 
  Country: None (occurrence: None)
  Receive Date: 20110310
  Receipt Date: 20110310
  Transmission Date: 20110831
  Serious: No
  Sender: FDA-Public Use
  Company Number: None

PATIENT
  Age: 65 Year
  Sex: Female
  Weight: 47.1741 kg

DRUGS (1)
  1. METROGEL [Suspect]
     Indication: ROSACEA
     Dosage: A LITTLE BIT ON SPOT TWICE A DAY
     Dates: start: 20110215, end: 20110218

REACTIONS (4)
  - PAIN [None]
  - RASH [None]
  - BURNING SENSATION [None]
  - PRURITUS [None]
